FAERS Safety Report 17104819 (Version 1)
Quarter: 2019Q4

REPORT INFORMATION
  Report Type: Spontaneous
  Country: US (occurrence: US)
  Receive Date: 20191203
  Receipt Date: 20191203
  Transmission Date: 20200122
  Serious: No
  Sender: FDA-Public Use
  Company Number: US-SHIRE-US201941638

PATIENT
  Age: 22 Year
  Sex: Male

DRUGS (1)
  1. ADVATE [Suspect]
     Active Substance: ANTIHEMOPHILIC FACTOR, HUMAN RECOMBINANT
     Indication: PRODUCT USED FOR UNKNOWN INDICATION
     Dosage: 2097 INTERNATIONAL UNIT PER DECILITRE, 1X/DAY:QD
     Route: 065

REACTIONS (4)
  - Joint dislocation [Recovered/Resolved]
  - Skin laceration [Recovered/Resolved]
  - Splenic injury [Recovered/Resolved]
  - Road traffic accident [Recovered/Resolved]

NARRATIVE: CASE EVENT DATE: 20191122
